FAERS Safety Report 7725545-8 (Version None)
Quarter: 2011Q3

REPORT INFORMATION
  Report Type: 
  Country: None (occurrence: None)
  Receive Date: 20110830
  Receipt Date: 20110815
  Transmission Date: 20111222
  Serious: Yes (Hospitalization, Other)
  Sender: FDA-Public Use
  Company Number: E2B_00000094

PATIENT
  Sex: Male
  Weight: 3.6 kg

DRUGS (1)
  1. LAMOTRIGINE [Suspect]
     Indication: MATERNAL EXPOSURE DURING PREGNANCY
     Dosage: , TRANSPLACENTAL
     Route: 064

REACTIONS (6)
  - NEONATAL RESPIRATORY DISTRESS SYNDROME [None]
  - MATERNAL DRUGS AFFECTING FOETUS [None]
  - FEEDING DISORDER NEONATAL [None]
  - BRADYCARDIA NEONATAL [None]
  - TEMPERATURE REGULATION DISORDER [None]
  - CAESAREAN SECTION [None]
